FAERS Safety Report 25291347 (Version 3)
Quarter: 2025Q4

REPORT INFORMATION
  Report Type: Report from Study
  Country: US (occurrence: US)
  Receive Date: 20250510
  Receipt Date: 20251017
  Transmission Date: 20260117
  Serious: Yes (Hospitalization, Other)
  Sender: BOEHRINGER INGELHEIM
  Company Number: US-BoehringerIngelheim-2024-BI-001905

PATIENT
  Age: 75 Year
  Sex: Male
  Weight: 85.5 kg

DRUGS (5)
  1. OFEV [Suspect]
     Active Substance: NINTEDANIB
     Indication: Idiopathic pulmonary fibrosis
     Dosage: LOT NUMBER: 208573,302414,403464,401725, 407612A
     Dates: start: 20200417
  2. OFEV [Suspect]
     Active Substance: NINTEDANIB
     Dates: start: 202510
  3. OFEV [Suspect]
     Active Substance: NINTEDANIB
  4. IMODIUM [Suspect]
     Active Substance: LOPERAMIDE HYDROCHLORIDE
     Indication: Diarrhoea
  5. ELIQUIS [Concomitant]
     Active Substance: APIXABAN
     Indication: Product used for unknown indication

REACTIONS (14)
  - Pancreatic failure [Not Recovered/Not Resolved]
  - Renal impairment [Unknown]
  - Anal haemorrhage [Not Recovered/Not Resolved]
  - Sepsis [Unknown]
  - Renal artery stent placement [Unknown]
  - Kidney infection [Unknown]
  - Prostate cancer [Unknown]
  - Faeces soft [Not Recovered/Not Resolved]
  - Diarrhoea [Recovered/Resolved]
  - Constipation [Unknown]
  - Pyrexia [Unknown]
  - Weight decreased [Unknown]
  - Diarrhoea [Not Recovered/Not Resolved]
  - Prostatic specific antigen increased [Unknown]

NARRATIVE: CASE EVENT DATE: 20200101
